FAERS Safety Report 11221670 (Version 1)
Quarter: 2015Q2

REPORT INFORMATION
  Report Type: Spontaneous
  Country: US (occurrence: None)
  Receive Date: 20150625
  Receipt Date: 20150625
  Transmission Date: 20150821
  Serious: Yes (Other)
  Sender: FDA-Public Use
  Company Number: None

PATIENT
  Age: 89 Year
  Sex: Female
  Weight: 63.5 kg

DRUGS (7)
  1. ISOSORBIDE [Concomitant]
     Active Substance: ISOSORBIDE
  2. METROPROLOL [Concomitant]
     Active Substance: METOPROLOL
  3. CALCIUM [Concomitant]
     Active Substance: CALCIUM
  4. PLAVIX [Concomitant]
     Active Substance: CLOPIDOGREL BISULFATE
  5. NAMENDA XR [Suspect]
     Active Substance: MEMANTINE HYDROCHLORIDE
     Indication: DEMENTIA ALZHEIMER^S TYPE
     Dosage: 1 TAB MORNING ONCE DAILY TAKEN BY MOUTH
     Route: 048
     Dates: start: 20150517, end: 20150518
  6. ARICEPT [Concomitant]
     Active Substance: DONEPEZIL HYDROCHLORIDE
  7. MULTI VITAMIN [Concomitant]
     Active Substance: VITAMINS

REACTIONS (8)
  - Confusional state [None]
  - Overdose [None]
  - Delirium [None]
  - Abasia [None]
  - Somnolence [None]
  - Coma [None]
  - Hypophagia [None]
  - Inappropriate affect [None]

NARRATIVE: CASE EVENT DATE: 20150519
